FAERS Safety Report 5400246-X (Version None)
Quarter: 2007Q3

REPORT INFORMATION
  Report Type: 
  Country: None (occurrence: None)
  Receive Date: 20070730
  Receipt Date: 20070717
  Transmission Date: 20080115
  Serious: Yes (Hospitalization)
  Sender: FDA-Public Use
  Company Number: US-ROCHE-454540

PATIENT
  Sex: Male
  Weight: 3.9 kg

DRUGS (1)
  1. ACCUTANE [Suspect]
     Indication: ACNE
     Dates: start: 19870101

REACTIONS (3)
  - NO ADVERSE REACTION [None]
  - NORMAL NEWBORN [None]
  - PREMATURE LABOUR [None]
